FAERS Safety Report 23779655 (Version 2)
Quarter: 2024Q2

REPORT INFORMATION
  Report Type: Spontaneous
  Country: US (occurrence: US)
  Receive Date: 20240424
  Receipt Date: 20240619
  Transmission Date: 20240715
  Serious: Yes (Hospitalization)
  Sender: FDA-Public Use
  Company Number: US-SA-SAC20240423000948

PATIENT
  Sex: Female

DRUGS (23)
  1. DUPIXENT [Suspect]
     Active Substance: DUPILUMAB
     Indication: Asthma
     Dosage: 300 MG, QOW
     Route: 058
     Dates: start: 20220412
  2. ALBUTEROL [Concomitant]
     Active Substance: ALBUTEROL
  3. ALPRAZOLAM [Concomitant]
     Active Substance: ALPRAZOLAM
  4. HYDROXYZINE [Concomitant]
     Active Substance: HYDROXYZINE HYDROCHLORIDE
  5. BACLOFEN [Concomitant]
     Active Substance: BACLOFEN
  6. EZETIMIBE [Concomitant]
     Active Substance: EZETIMIBE
  7. FLONASE [Concomitant]
     Active Substance: FLUTICASONE PROPIONATE
  8. FLOVENT [Interacting]
     Active Substance: FLUTICASONE PROPIONATE
  9. NUCYNTA [Concomitant]
     Active Substance: TAPENTADOL HYDROCHLORIDE
  10. NYSTATIN [Concomitant]
     Active Substance: NYSTATIN
  11. OMEPRAZOLE [Concomitant]
     Active Substance: DONEPEZIL HYDROCHLORIDE\OMEPRAZOLE\OMEPRAZOLE MAGNESIUM
  12. PREDNISONE [Concomitant]
     Active Substance: PREDNISONE
  13. PROMETHAZINE [Concomitant]
     Active Substance: PROMETHAZINE HYDROCHLORIDE
  14. PROMETHAZINE [Concomitant]
     Active Substance: PROMETHAZINE HYDROCHLORIDE
  15. REPATHA [Concomitant]
     Active Substance: EVOLOCUMAB
  16. SYMBICORT [Concomitant]
     Active Substance: BUDESONIDE\FORMOTEROL FUMARATE DIHYDRATE
  17. SYMBICORT [Concomitant]
     Active Substance: BUDESONIDE\FORMOTEROL FUMARATE DIHYDRATE
  18. SYNTHROID [Concomitant]
     Active Substance: LEVOTHYROXINE SODIUM
  19. SAMBUCUS NIGRA [Concomitant]
     Active Substance: HOMEOPATHICS
  20. ZINC [Concomitant]
     Active Substance: PYRITHIONE ZINC\ZINC\ZINC CHLORIDE
  21. CHLORIDE;CITRIC ACID;GLUCOSE;POTASSIUM;SODIUM [Concomitant]
  22. ALBUTEROL [Concomitant]
     Active Substance: ALBUTEROL
  23. VITAMIN D3 [Concomitant]
     Active Substance: CHOLECALCIFEROL
     Dosage: UNK

REACTIONS (3)
  - Asthma [Not Recovered/Not Resolved]
  - Impaired quality of life [Unknown]
  - Stomatitis [Unknown]
